FAERS Safety Report 8464534-5 (Version None)
Quarter: 2012Q2

REPORT INFORMATION
  Report Type: 
  Country: None (occurrence: None)
  Receive Date: 20120323
  Receipt Date: 20111129
  Transmission Date: 20120825
  Serious: Yes (Death)
  Sender: FDA-Public Use
  Company Number: 163-21880-11102032

PATIENT
  Age: 62 Year
  Sex: Female

DRUGS (28)
  1. CYMBALTA [Concomitant]
  2. PRILOSEC [Concomitant]
  3. ACYCLOVIR [Concomitant]
  4. ERYTHROMYCIN [Concomitant]
  5. LEVOTHYROXINE SODIUM [Concomitant]
  6. MORPHINE [Concomitant]
  7. PREDNISONE TAB [Concomitant]
  8. BROMELAIN (BROMELAINS) [Concomitant]
  9. ATIVAN [Concomitant]
  10. PROCRIT [Concomitant]
  11. REVLIMID [Suspect]
     Indication: MULTIPLE MYELOMA
     Dosage: 25 MG, QD X 21 DAYS OF 28 DAY CYCLE, PO
     Route: 048
     Dates: start: 20100622, end: 20111003
  12. AREDIA [Concomitant]
  13. LIDODERM [Concomitant]
  14. PERIDEX (CHLORHEXIDINE GLUCONATE) [Concomitant]
  15. AMOXICILLIN [Concomitant]
  16. OXYCODONE HCL [Concomitant]
  17. CALCIUM +D (OS-CAL) [Concomitant]
  18. EPH-DHA COMPLEX (OMEGA-3 TRIGLYCERIDES) [Concomitant]
  19. ASPIRIN [Concomitant]
  20. CEPHALEXIN [Concomitant]
  21. HYDROCODONE BITARTRATE [Concomitant]
  22. POTASSIUM CHLORIDE [Concomitant]
  23. MORPHINE SULFATE INJ [Concomitant]
  24. ONDANSETRON HCL (ONDANSETRON HYDROCHLORIDE) [Concomitant]
  25. AUGMENTIN '125' [Concomitant]
  26. DECADRON [Concomitant]
  27. FUROSEMIDE [Concomitant]
  28. ZITHROMAX [Concomitant]

REACTIONS (1)
  - PNEUMONIA [None]
